FAERS Safety Report 8395187-2 (Version None)
Quarter: 2012Q2

REPORT INFORMATION
  Report Type: 
  Country: None (occurrence: None)
  Receive Date: 20120530
  Receipt Date: 20110804
  Transmission Date: 20120825
  Serious: Yes (Life-Threatening, Other)
  Sender: FDA-Public Use
  Company Number: US-BAYER-2011-073073

PATIENT
  Age: 52 Year
  Sex: Female
  Weight: 41 kg

DRUGS (3)
  1. TENORETIC 100 [Concomitant]
     Indication: BLOOD PRESSURE ABNORMAL
  2. CIPROFLOXACIN HCL [Suspect]
     Indication: URINARY TRACT INFECTION
     Dosage: 500 MG, BID
     Dates: start: 20110226, end: 20110227
  3. KEPPRA [Concomitant]
     Indication: CONVULSION
     Dosage: 500 MG, QD

REACTIONS (17)
  - MULTI-ORGAN FAILURE [None]
  - MUSCULOSKELETAL PAIN [None]
  - MYDRIASIS [None]
  - BLOOD PRESSURE DECREASED [None]
  - MUSCLE ATROPHY [None]
  - DYSPNOEA [None]
  - CYANOSIS [None]
  - RENAL FAILURE [None]
  - UNRESPONSIVE TO STIMULI [None]
  - SEPTIC SHOCK [None]
  - COMA [None]
  - FATIGUE [None]
  - PRESYNCOPE [None]
  - SHOCK HYPOGLYCAEMIC [None]
  - NAUSEA [None]
  - HEPATIC FAILURE [None]
  - WEIGHT DECREASED [None]
